FAERS Safety Report 7508359-3 (Version None)
Quarter: 2011Q2

REPORT INFORMATION
  Report Type: 
  Country: None (occurrence: None)
  Receive Date: 20110519
  Receipt Date: 20110512
  Transmission Date: 20111010
  Serious: Yes (Death, Hospitalization, Disabling, Other)
  Sender: FDA-Public Use
  Company Number: 2010SP034645

PATIENT
  Age: 27 Year
  Sex: Female
  Weight: 52.6173 kg

DRUGS (7)
  1. KETOCONAZOLE [Concomitant]
  2. RETIN-A [Concomitant]
  3. CLEOCIN HYDROCHLORIDE [Concomitant]
  4. NUVARING [Suspect]
     Indication: ENDOMETRIOSIS
     Dates: start: 20080424, end: 20080620
  5. NUVARING [Suspect]
     Indication: MUSCLE SPASMS
     Dates: start: 20080424, end: 20080620
  6. DOXYCYCLINE HYCLATE [Concomitant]
  7. TRIAMCINOLONE [Concomitant]

REACTIONS (9)
  - SUBDURAL HAEMATOMA [None]
  - BRAIN HERNIATION [None]
  - CEREBRAL THROMBOSIS [None]
  - POST PROCEDURAL HAEMATOMA [None]
  - CEREBROVASCULAR ACCIDENT [None]
  - SUBARACHNOID HAEMORRHAGE [None]
  - INTRACRANIAL VENOUS SINUS THROMBOSIS [None]
  - CONVULSION [None]
  - HYDROCEPHALUS [None]
